FAERS Safety Report 23667841 (Version 1)
Quarter: 2024Q1

REPORT INFORMATION
  Report Type: Spontaneous
  Country: FR (occurrence: FR)
  Receive Date: 20240325
  Receipt Date: 20240325
  Transmission Date: 20240410
  Serious: Yes (Other)
  Sender: FDA-Public Use
  Company Number: None

PATIENT
  Age: 15 Year
  Sex: Female
  Weight: 46 kg

DRUGS (1)
  1. TRAMADOL HYDROCHLORIDE [Suspect]
     Active Substance: TRAMADOL HYDROCHLORIDE
     Indication: Product used for unknown indication
     Dosage: 15 TABS OF 50 MG BETWEEN 12 P.M. AND 8 P.M.
     Route: 048
     Dates: start: 20231109, end: 20231109

REACTIONS (6)
  - Drug use disorder [Unknown]
  - Respiratory depression [Recovered/Resolved]
  - Dizziness [Unknown]
  - Dysuria [Unknown]
  - Somnolence [Unknown]
  - Miosis [Unknown]

NARRATIVE: CASE EVENT DATE: 20231109
